FAERS Safety Report 8623434-8 (Version None)
Quarter: 2012Q3

REPORT INFORMATION
  Report Type: 
  Country: None (occurrence: None)
  Receive Date: 20120827
  Receipt Date: 20120815
  Transmission Date: 20120928
  Serious: Yes (Death)
  Sender: FDA-Public Use
  Company Number: US-BRISTOL-MYERS SQUIBB COMPANY-16859720

PATIENT
  Age: 43 Year
  Sex: Male

DRUGS (4)
  1. SPRYCEL [Suspect]
     Indication: NEOPLASM MALIGNANT
     Route: 048
     Dates: start: 20120502
  2. VOTRIENT [Suspect]
  3. EVEROLIMUS [Suspect]
  4. TARCEVA [Suspect]

REACTIONS (1)
  - DEATH [None]
